FAERS Safety Report 8847862 (Version 5)
Quarter: 2013Q3

REPORT INFORMATION
  Report Type: Spontaneous
  Country: US (occurrence: US)
  Receive Date: 20121018
  Receipt Date: 20130822
  Transmission Date: 20140515
  Serious: Yes (Hospitalization, Other)
  Sender: FDA-Public Use
  Company Number: US-009507513-1202USA02820

PATIENT
  Sex: Female

DRUGS (6)
  1. FOSAMAX [Suspect]
     Indication: OSTEOPOROSIS
     Dosage: 5 MG, UNK
     Route: 048
     Dates: start: 19971029, end: 20100220
  2. FOSAMAX [Suspect]
     Dosage: 10 MG, UNK
     Route: 048
     Dates: start: 19971029, end: 20100220
  3. FOSAMAX [Suspect]
     Dosage: 70 MG, QW
     Route: 048
     Dates: start: 19971029, end: 20100611
  4. FOSAMAX PLUS D [Suspect]
     Indication: OSTEOPOROSIS
     Dosage: 70 MG/2800IU, UNK
     Route: 048
     Dates: start: 19971029, end: 20100220
  5. ALENDRONATE SODIUM [Suspect]
     Indication: OSTEOPOROSIS
     Dosage: UNK
     Route: 048
     Dates: start: 20081023
  6. HORMONES (UNSPECIFIED) [Concomitant]
     Dosage: UNK
     Dates: start: 1978, end: 2003

REACTIONS (39)
  - Femur fracture [Unknown]
  - Open reduction of fracture [Unknown]
  - Fall [Unknown]
  - Head and neck cancer [Unknown]
  - Fall [Unknown]
  - Hyponatraemia [Recovering/Resolving]
  - Head injury [Unknown]
  - Contusion [Unknown]
  - Skull fracture [Unknown]
  - Subarachnoid haemorrhage [Unknown]
  - Supraventricular extrasystoles [Unknown]
  - Subdural haematoma [Recovering/Resolving]
  - Intraventricular haemorrhage [Recovering/Resolving]
  - Low turnover osteopathy [Unknown]
  - Depression [Unknown]
  - Periodontal operation [Unknown]
  - Dental implantation [Unknown]
  - Tooth extraction [Unknown]
  - Impaired healing [Unknown]
  - Hypothyroidism [Unknown]
  - Calcium deficiency [Unknown]
  - Vitamin D deficiency [Unknown]
  - Oral surgery [Unknown]
  - Bipolar I disorder [Unknown]
  - Diverticulum [Unknown]
  - Hyperlipidaemia [Not Recovered/Not Resolved]
  - Hypertension [Unknown]
  - Atrophic vulvovaginitis [Unknown]
  - Insomnia [Unknown]
  - Osteopenia [Unknown]
  - Scoliosis [Unknown]
  - Hormone therapy [Unknown]
  - Urinary tract infection [Recovered/Resolved]
  - Hyponatraemia [Recovered/Resolved]
  - Anaemia [Unknown]
  - Spinal osteoarthritis [Unknown]
  - Back pain [Unknown]
  - Dizziness [Unknown]
  - Pain in extremity [Unknown]
